FAERS Safety Report 13973673 (Version 3)
Quarter: 2018Q4

REPORT INFORMATION
  Report Type: Spontaneous
  Country: US (occurrence: US)
  Receive Date: 20170914
  Receipt Date: 20181127
  Transmission Date: 20190204
  Serious: Yes (Hospitalization)
  Sender: FDA-Public Use
  Company Number: US-ASTELLAS-2017US031023

PATIENT
  Sex: Male

DRUGS (2)
  1. XTANDI [Suspect]
     Active Substance: ENZALUTAMIDE
     Indication: PROSTATE CANCER
     Route: 048
     Dates: start: 20161209, end: 201811
  2. NOVOLOG [Concomitant]
     Active Substance: INSULIN ASPART
     Indication: DIABETES MELLITUS
     Route: 065

REACTIONS (11)
  - Blood pressure decreased [Recovering/Resolving]
  - Hypersomnia [Unknown]
  - Asthenia [Recovering/Resolving]
  - Dysphagia [Unknown]
  - Eructation [Unknown]
  - Product size issue [Unknown]
  - Decreased appetite [Recovering/Resolving]
  - Dehydration [Recovering/Resolving]
  - Gastrooesophageal reflux disease [Unknown]
  - Fatigue [Unknown]
  - Decreased appetite [Unknown]
